FAERS Safety Report 7198575-5 (Version None)
Quarter: 2010Q4

REPORT INFORMATION
  Report Type: 
  Country: None (occurrence: None)
  Receive Date: 20101227
  Receipt Date: 20101217
  Transmission Date: 20110411
  Serious: Yes (Hospitalization)
  Sender: FDA-Public Use
  Company Number: JP-JNJFOC-20101202507

PATIENT
  Sex: Female
  Weight: 41 kg

DRUGS (11)
  1. GOLIMUMAB [Suspect]
     Indication: RHEUMATOID ARTHRITIS
     Route: 058
  2. GOLIMUMAB [Suspect]
     Route: 058
  3. RHEUMATREX [Concomitant]
     Indication: RHEUMATOID ARTHRITIS
     Route: 048
  4. PREDNISOLONE [Concomitant]
     Indication: RHEUMATOID ARTHRITIS
     Route: 048
  5. FOLIAMIN [Concomitant]
     Indication: PROPHYLAXIS
     Route: 048
  6. MELOXICAM [Concomitant]
     Indication: RHEUMATOID ARTHRITIS
     Route: 048
  7. TAGAMET [Concomitant]
     Indication: PROPHYLAXIS
     Route: 048
  8. MUCOSTA [Concomitant]
     Indication: PROPHYLAXIS
     Route: 048
  9. ONEALFA [Concomitant]
     Indication: OSTEOPOROSIS
     Route: 048
  10. CALBLOCK [Concomitant]
     Indication: HYPERTENSION
     Route: 048
  11. DIOVAN [Concomitant]
     Indication: HYPERTENSION
     Route: 048

REACTIONS (1)
  - PNEUMONIA [None]
